FAERS Safety Report 12134374 (Version 3)
Quarter: 2023Q2

REPORT INFORMATION
  Report Type: Spontaneous
  Country: US (occurrence: US)
  Receive Date: 20160301
  Receipt Date: 20230530
  Transmission Date: 20230721
  Serious: Yes (Other)
  Sender: FDA-Public Use
  Company Number: US-PIRAMAL ENTERPRISES LIMITED-2016-PEL-000653

PATIENT

DRUGS (6)
  1. ISOFLURANE [Suspect]
     Active Substance: ISOFLURANE
     Indication: Anaesthesia
     Dosage: CONTINUOUS
  2. ISOFLURANE [Suspect]
     Active Substance: ISOFLURANE
     Indication: Asthmatic crisis
  3. ALBUTEROL\IPRATROPIUM [Concomitant]
     Active Substance: ALBUTEROL\IPRATROPIUM
     Indication: Asthmatic crisis
     Dosage: UNK
     Route: 065
  4. MAGNESIUM SULFATE [Concomitant]
     Active Substance: MAGNESIUM SULFATE
     Indication: Asthmatic crisis
     Dosage: UNK
     Route: 042
  5. METHYLPREDNISOLONE [Concomitant]
     Active Substance: METHYLPREDNISOLONE
     Indication: Asthmatic crisis
     Dosage: UNK
     Route: 042
  6. TERBUTALINE [Concomitant]
     Active Substance: TERBUTALINE
     Indication: Asthmatic crisis
     Dosage: UNK
     Route: 058

REACTIONS (2)
  - Asthma [Unknown]
  - Maternal exposure during pregnancy [Unknown]
